FAERS Safety Report 9408282 (Version 2)
Quarter: 2013Q4

REPORT INFORMATION
  Report Type: Spontaneous
  Country: US (occurrence: US)
  Receive Date: 20130718
  Receipt Date: 20131023
  Transmission Date: 20140711
  Serious: Yes (Hospitalization)
  Sender: FDA-Public Use
  Company Number: US-GLAXOSMITHKLINE-A1028483A

PATIENT
  Age: 37 Year
  Sex: Male

DRUGS (1)
  1. FLOLAN [Suspect]
     Indication: COR PULMONALE CHRONIC
     Dosage: 30NGKM CONTINUOUS
     Route: 042
     Dates: start: 20030319

REACTIONS (3)
  - Diarrhoea haemorrhagic [Recovered/Resolved]
  - Hospitalisation [Recovered/Resolved]
  - Surgery [Recovered/Resolved]
